FAERS Safety Report 4365999-0 (Version None)
Quarter: 2004Q2

REPORT INFORMATION
  Report Type: 
  Country: None (occurrence: None)
  Receive Date: 20040524
  Receipt Date: 20040220
  Transmission Date: 20050107
  Serious: No
  Sender: FDA-Public Use
  Company Number: SU-2004-002153

PATIENT
  Age: 74 Year
  Sex: Female

DRUGS (4)
  1. BENICAR [Suspect]
     Indication: HYPERTENSION
     Dosage: 20 MG HS PO
     Route: 048
     Dates: start: 20030101, end: 20040208
  2. BENICAR [Suspect]
     Indication: HYPERTENSION
     Dosage: 40 MG HS PO
     Route: 048
     Dates: start: 20040209
  3. MICRO-K [Concomitant]
  4. MICARDIS [Concomitant]

REACTIONS (3)
  - BLOOD PRESSURE INCREASED [None]
  - DIZZINESS [None]
  - DRUG INEFFECTIVE [None]
